FAERS Safety Report 6754708-3 (Version None)
Quarter: 2010Q2

REPORT INFORMATION
  Report Type: 
  Country: None (occurrence: None)
  Receive Date: 20100603
  Receipt Date: 20100525
  Transmission Date: 20101027
  Serious: Yes (Hospitalization)
  Sender: FDA-Public Use
  Company Number: US-BAXTER-2010BH010010

PATIENT
  Age: 41 Year
  Sex: Female

DRUGS (2)
  1. DIANEAL [Suspect]
     Indication: PERITONEAL DIALYSIS
     Route: 033
  2. MIDODRINE HYDROCHLORIDE [Concomitant]
     Indication: BLOOD PRESSURE
     Route: 065

REACTIONS (7)
  - ASTHENIA [None]
  - DEHYDRATION [None]
  - DIARRHOEA [None]
  - FAILURE TO THRIVE [None]
  - IMPAIRED GASTRIC EMPTYING [None]
  - NAUSEA [None]
  - VOMITING [None]
